FAERS Safety Report 16482419 (Version 6)
Quarter: 2019Q4

REPORT INFORMATION
  Report Type: Report from Study
  Country: None (occurrence: SZ)
  Receive Date: 20190627
  Receipt Date: 20191006
  Transmission Date: 20200122
  Serious: Yes (Hospitalization, Other)
  Sender: FDA-Public Use
  Company Number: CH-ABBVIE-19S-151-2833624-00

PATIENT
  Age: 84 Year
  Sex: Female
  Weight: 43 kg

DRUGS (6)
  1. DUODOPA [Suspect]
     Active Substance: CARBIDOPA\LEVODOPA
     Indication: PARKINSON^S DISEASE
     Route: 050
     Dates: start: 20190617, end: 20190621
  2. DUODOPA [Suspect]
     Active Substance: CARBIDOPA\LEVODOPA
     Dosage: MD: 10.5 ML; CD: 3.5 ML/H; ED: 2 ML; ED BLOCKING TIME: 1 H; LOCK LEVEL: 0
     Route: 050
     Dates: start: 20190904, end: 2019
  3. DUODOPA [Suspect]
     Active Substance: CARBIDOPA\LEVODOPA
     Dosage: MD: 10.5 ML; CD: 3.2 ML/H; ED: 1.5 ML 16H THERAPY
     Route: 050
     Dates: start: 20190704, end: 20190904
  4. DUODOPA [Suspect]
     Active Substance: CARBIDOPA\LEVODOPA
     Route: 050
  5. PROPOFOL. [Suspect]
     Active Substance: PROPOFOL
     Indication: SEDATION
     Route: 065
  6. DUODOPA [Suspect]
     Active Substance: CARBIDOPA\LEVODOPA
     Dosage: MD: 10.5 ML, CD DAY 3.1 ML/H, CD NIGHT: 0 ML/H, ED: 1 ML. 16 H THERAPY
     Route: 050
     Dates: start: 20190621, end: 20190704

REACTIONS (8)
  - Malaise [Recovered/Resolved]
  - Pyrexia [Recovered/Resolved]
  - Freezing phenomenon [Unknown]
  - Intestinal ischaemia [Recovered/Resolved]
  - Weight decreased [Recovering/Resolving]
  - Malaise [Recovering/Resolving]
  - Fatigue [Recovering/Resolving]
  - Akinesia [Recovering/Resolving]

NARRATIVE: CASE EVENT DATE: 2019
